FAERS Safety Report 14068092 (Version 3)
Quarter: 2018Q4

REPORT INFORMATION
  Report Type: Spontaneous
  Country: CA (occurrence: CA)
  Receive Date: 20171010
  Receipt Date: 20181217
  Transmission Date: 20190204
  Serious: Yes (Other)
  Sender: FDA-Public Use
  Company Number: CA-AMGEN-CANSP2017151688

PATIENT
  Sex: Male

DRUGS (12)
  1. HYDROXYCHLOROQUINE SULFATE. [Suspect]
     Active Substance: HYDROXYCHLOROQUINE SULFATE
     Indication: PRODUCT USED FOR UNKNOWN INDICATION
     Route: 065
  2. IMURAN [Concomitant]
     Active Substance: AZATHIOPRINE
     Indication: RHEUMATOID ARTHRITIS
     Dosage: UNK
     Route: 065
  3. METHOTREXATE. [Concomitant]
     Active Substance: METHOTREXATE
     Indication: RHEUMATOID ARTHRITIS
     Dosage: 50, UNK, QD
     Route: 065
     Dates: end: 2017
  4. ENBREL [Suspect]
     Active Substance: ETANERCEPT
     Indication: RHEUMATOID ARTHRITIS
     Dosage: UNK
     Route: 065
  5. HUMIRA [Suspect]
     Active Substance: ADALIMUMAB
     Indication: PRODUCT USED FOR UNKNOWN INDICATION
     Dosage: UNK
     Route: 065
  6. METHOTREXATE. [Concomitant]
     Active Substance: METHOTREXATE
     Dosage: UNK
     Route: 065
  7. AZATHIOPRINE. [Suspect]
     Active Substance: AZATHIOPRINE
     Dosage: UNK
     Route: 065
  8. SULFASALAZINE. [Suspect]
     Active Substance: SULFASALAZINE
     Indication: RHEUMATOID ARTHRITIS
     Dosage: UNK
     Route: 065
  9. ORENCIA [Suspect]
     Active Substance: ABATACEPT
     Indication: RHEUMATOID ARTHRITIS
     Dosage: UNK
     Route: 065
     Dates: start: 201608
  10. HYDROXYCHLOROQUINE [Suspect]
     Active Substance: HYDROXYCHLOROQUINE
     Indication: PRODUCT USED FOR UNKNOWN INDICATION
     Dosage: UNK
     Route: 065
  11. AZATHIOPRINE. [Suspect]
     Active Substance: AZATHIOPRINE
     Indication: PRODUCT USED FOR UNKNOWN INDICATION
     Dosage: 50 DIE, UNK
     Route: 065
  12. LEFLUNOMIDE. [Suspect]
     Active Substance: LEFLUNOMIDE
     Indication: PRODUCT USED FOR UNKNOWN INDICATION
     Dosage: UNK
     Route: 065

REACTIONS (6)
  - Drug ineffective [Unknown]
  - Dyspepsia [Unknown]
  - Rheumatoid arthritis [Unknown]
  - Food intolerance [Unknown]
  - Hepatotoxicity [Unknown]
  - Rash [Unknown]
